FAERS Safety Report 23445423 (Version 1)
Quarter: 2024Q1

REPORT INFORMATION
  Report Type: Spontaneous
  Country: US (occurrence: US)
  Receive Date: 20240126
  Receipt Date: 20240126
  Transmission Date: 20240410
  Serious: Yes (Other)
  Sender: FDA-Public Use
  Company Number: US-BRISTOL-MYERS SQUIBB COMPANY-2024-012623

PATIENT
  Age: 66 Year
  Sex: Female

DRUGS (1)
  1. POMALYST [Suspect]
     Active Substance: POMALIDOMIDE
     Indication: Plasma cell myeloma
     Dosage: FREQ:  QD
     Route: 048
     Dates: start: 20230609, end: 20240102

REACTIONS (2)
  - Plasma cell myeloma [Unknown]
  - Neutropenia [Unknown]

NARRATIVE: CASE EVENT DATE: 20240102
